FAERS Safety Report 12900558 (Version 1)
Quarter: 2016Q4

REPORT INFORMATION
  Report Type: Spontaneous
  Country: JP (occurrence: JP)
  Receive Date: 20161101
  Receipt Date: 20161101
  Transmission Date: 20170207
  Serious: Yes (Other)
  Sender: FDA-Public Use
  Company Number: JP-PFIZER INC-2016499039

PATIENT
  Age: 63 Year
  Sex: Female

DRUGS (4)
  1. ACTEMRA [Concomitant]
     Active Substance: TOCILIZUMAB
     Dosage: UNK, EVERY 2 WEEKS
     Route: 048
  2. PARIET [Suspect]
     Active Substance: RABEPRAZOLE SODIUM
     Dosage: UNK
     Dates: end: 201610
  3. CELECOX [Suspect]
     Active Substance: CELECOXIB
     Dosage: 400 MG, DAILY
     Route: 048
     Dates: end: 201610
  4. CRESTOR [Suspect]
     Active Substance: ROSUVASTATIN CALCIUM
     Dosage: UNK
     Dates: end: 201610

REACTIONS (2)
  - White blood cell count decreased [Recovered/Resolved]
  - Neutrophil percentage decreased [Recovered/Resolved]

NARRATIVE: CASE EVENT DATE: 20161008
